FAERS Safety Report 16939491 (Version 1)
Quarter: 2019Q4

REPORT INFORMATION
  Report Type: Report from Study
  Country: DE (occurrence: DE)
  Receive Date: 20191021
  Receipt Date: 20191021
  Transmission Date: 20200122
  Serious: Yes (Death)
  Sender: FDA-Public Use
  Company Number: DE-ADIENNEP-2019AD000467

PATIENT
  Age: 58 Year
  Sex: Male

DRUGS (8)
  1. MELPHALAN. [Suspect]
     Active Substance: MELPHALAN
     Indication: PREMEDICATION
     Dosage: 260 MG, QD
     Route: 042
     Dates: start: 20190918, end: 20190918
  2. THIOTEPA. [Suspect]
     Active Substance: THIOTEPA
     Indication: PREMEDICATION
     Dosage: 560 MG, QD
     Route: 042
     Dates: start: 20190913, end: 20190913
  3. ETOPOSIDE. [Suspect]
     Active Substance: ETOPOSIDE
     Indication: PREMEDICATION
     Dosage: 280 MG, QD
     Route: 042
     Dates: start: 20190914, end: 20190917
  4. VALSARTAN. [Concomitant]
     Active Substance: VALSARTAN
     Indication: PREMEDICATION
     Dosage: 160 MG, BID
     Route: 048
  5. PLERIXAFOR [Suspect]
     Active Substance: PLERIXAFOR
     Indication: NON-HODGKIN^S LYMPHOMA
     Dosage: UNK UNK, QD ()
     Route: 058
     Dates: start: 20190720, end: 20190723
  6. CYTARABINE. [Suspect]
     Active Substance: CYTARABINE
     Indication: PREMEDICATION
     Dosage: 760 MG, QD
     Route: 042
     Dates: start: 20190914, end: 20190917
  7. BISOPROLOL [Concomitant]
     Active Substance: BISOPROLOL
     Indication: PREMEDICATION
     Dosage: 2.5 MG, BID
     Route: 048
  8. ATORVASTATIN [ATORVASTATIN CALCIUM] [Concomitant]
     Active Substance: ATORVASTATIN CALCIUM
     Indication: PREMEDICATION
     Dosage: 21.65 MG, QD
     Route: 048

REACTIONS (2)
  - Neutropenic sepsis [Fatal]
  - Multiple organ dysfunction syndrome [Fatal]

NARRATIVE: CASE EVENT DATE: 20190920
